FAERS Safety Report 17314503 (Version 2)
Quarter: 2020Q1

REPORT INFORMATION
  Report Type: Spontaneous
  Country: US (occurrence: US)
  Receive Date: 20200124
  Receipt Date: 20200212
  Transmission Date: 20200409
  Serious: Yes (Other)
  Sender: FDA-Public Use
  Company Number: US-CELGENEUS-USA-20200107707

PATIENT
  Age: 84 Year
  Sex: Female

DRUGS (2)
  1. REVLIMID [Suspect]
     Active Substance: LENALIDOMIDE
     Indication: PLASMA CELL MYELOMA
     Dosage: 25 MILLIGRAM
     Route: 048
     Dates: start: 20190222
  2. REVLIMID [Suspect]
     Active Substance: LENALIDOMIDE
     Indication: PLASMA CELL MYELOMA IN REMISSION

REACTIONS (1)
  - Deep vein thrombosis [Recovering/Resolving]

NARRATIVE: CASE EVENT DATE: 20200116
